FAERS Safety Report 20170857 (Version 1)
Quarter: 2021Q4

REPORT INFORMATION
  Report Type: Spontaneous
  Country: US (occurrence: None)
  Receive Date: 20211210
  Receipt Date: 20211210
  Transmission Date: 20220303
  Serious: Yes (Death)
  Sender: FDA-Public Use
  Company Number: None

PATIENT
  Age: 81 Year
  Sex: Male

DRUGS (4)
  1. DOFETILIDE [Suspect]
     Active Substance: DOFETILIDE
     Indication: Pulmonary arterial hypertension
     Dosage: FREQUENCY : TWICE A DAY;?
     Route: 048
     Dates: start: 20190806, end: 20211201
  2. DOFETILIDE [Suspect]
     Active Substance: DOFETILIDE
     Dosage: FREQUENCY : TWICE A DAY;?
     Route: 048
  3. SILDENAFIL [Concomitant]
     Active Substance: SILDENAFIL
  4. SILDENAFIL CITRATE [Concomitant]
     Active Substance: SILDENAFIL CITRATE

REACTIONS (1)
  - Death [None]

NARRATIVE: CASE EVENT DATE: 20211201
